FAERS Safety Report 4923079-7 (Version None)
Quarter: 2006Q1

REPORT INFORMATION
  Report Type: 
  Country: None (occurrence: None)
  Receive Date: 20060113
  Receipt Date: 20050713
  Transmission Date: 20060701
  Serious: Yes (Other)
  Sender: FDA-Public Use
  Company Number: HQ3963727AUG2002

PATIENT
  Age: 70 Year
  Sex: Female
  Weight: 63.56 kg

DRUGS (10)
  1. PREMPRO [Suspect]
     Indication: HORMONE REPLACEMENT THERAPY
     Dosage: SEE IMAGE
     Dates: start: 19980101, end: 20000101
  2. PREMPRO [Suspect]
     Indication: HORMONE REPLACEMENT THERAPY
     Dosage: SEE IMAGE
     Dates: start: 20000101
  3. . [Concomitant]
  4. PREMARIN [Suspect]
     Dosage: ORAL
     Route: 048
     Dates: start: 19870101
  5. PROVERA [Suspect]
     Dosage: ADDITIONAL 5MG DAILY, ORAL
     Route: 048
     Dates: start: 20020601
  6. UNSPECIFIED HORMONE REPLACEMENT THERAPY AGENT (UNSPECIFIED HORMONE REP [Suspect]
  7. SYNTHROID [Concomitant]
  8. ACCUPRIL [Concomitant]
  9. CELEBREX [Concomitant]
  10. ATENOLOL [Concomitant]

REACTIONS (1)
  - BREAST CANCER [None]
